FAERS Safety Report 5220578-8 (Version None)
Quarter: 2007Q1

REPORT INFORMATION
  Report Type: 
  Country: None (occurrence: None)
  Receive Date: 20070125
  Receipt Date: 20070125
  Transmission Date: 20070707
  Serious: Yes (Hospitalization)
  Sender: FDA-Public Use
  Company Number: None

PATIENT
  Sex: Male
  Weight: 77.1115 kg

DRUGS (2)
  1. OXYCONTIN [Suspect]
     Indication: BACK PAIN
     Dosage: 80MG PO BID STARTED 2 OR 3 YRS AGO
     Route: 048
  2. ADD MEDICATION [Concomitant]

REACTIONS (4)
  - DIZZINESS [None]
  - DRUG DOSE OMISSION [None]
  - NAUSEA [None]
  - VOMITING [None]
